FAERS Safety Report 20728298 (Version 4)
Quarter: 2022Q2

REPORT INFORMATION
  Report Type: Report from Study
  Country: US (occurrence: US)
  Receive Date: 20220420
  Receipt Date: 20220508
  Transmission Date: 20220721
  Serious: Yes (Hospitalization, Other)
  Sender: FDA-Public Use
  Company Number: US-BRISTOL-MYERS SQUIBB COMPANY-2022-018590

PATIENT
  Age: 62 Year
  Sex: Male
  Weight: 103 kg

DRUGS (7)
  1. NIVOLUMAB [Suspect]
     Active Substance: NIVOLUMAB
     Indication: Liposarcoma
     Route: 042
     Dates: start: 20211116, end: 20220308
  2. IPILIMUMAB [Suspect]
     Active Substance: IPILIMUMAB
     Indication: Liposarcoma
     Route: 042
     Dates: start: 20211116, end: 20220215
  3. IPILIMUMAB [Suspect]
     Active Substance: IPILIMUMAB
     Route: 042
     Dates: start: 20220215
  4. CABOZANTINIB [Suspect]
     Active Substance: CABOZANTINIB
     Indication: Liposarcoma
     Route: 048
     Dates: start: 20211116, end: 20220314
  5. LEVOTHYROXINE [Concomitant]
     Active Substance: LEVOTHYROXINE
     Indication: Product used for unknown indication
     Dosage: DAILY
     Route: 065
  6. PREDNISONE [Concomitant]
     Active Substance: PREDNISONE
     Indication: Product used for unknown indication
     Dosage: 7 DAYS
     Route: 065
  7. PREDNISONE [Concomitant]
     Active Substance: PREDNISONE
     Dosage: DAILY

REACTIONS (1)
  - Sepsis [Unknown]

NARRATIVE: CASE EVENT DATE: 20220319
